FAERS Safety Report 6850241-9 (Version None)
Quarter: 2010Q3

REPORT INFORMATION
  Report Type: 
  Country: None (occurrence: None)
  Receive Date: 20100716
  Receipt Date: 20071016
  Transmission Date: 20110219
  Serious: No
  Sender: FDA-Public Use
  Company Number: US-PFIZER INC-2007086704

PATIENT
  Sex: Female
  Weight: 75 kg

DRUGS (7)
  1. CHANTIX [Suspect]
     Indication: SMOKING CESSATION THERAPY
     Route: 048
     Dates: start: 20070101, end: 20070101
  2. VITAMIN B-12 [Suspect]
  3. ACIPHEX [Concomitant]
  4. LEVOTHROID [Concomitant]
  5. ANTACID TAB [Concomitant]
  6. TRIAMTERENE [Concomitant]
  7. ACETYLSALICYLIC ACID [Concomitant]

REACTIONS (1)
  - NAUSEA [None]
